FAERS Safety Report 4686653-1 (Version None)
Quarter: 2005Q2

REPORT INFORMATION
  Report Type: 
  Country: None (occurrence: None)
  Receive Date: 20050609
  Receipt Date: 20050527
  Transmission Date: 20051028
  Serious: Yes (Disabling)
  Sender: FDA-Public Use
  Company Number: 2005AP03126

PATIENT
  Age: 39 Year
  Sex: Female

DRUGS (2)
  1. SEROQUEL [Suspect]
     Indication: DEPRESSION
     Route: 048
     Dates: start: 20050201
  2. DOTHIEPIN HYDROHCLORIDE [Concomitant]

REACTIONS (2)
  - HEADACHE [None]
  - HYPERMETROPIA [None]
